FAERS Safety Report 18598812 (Version 1)
Quarter: 2020Q4

REPORT INFORMATION
  Report Type: Spontaneous
  Country: NL (occurrence: NL)
  Receive Date: 20201210
  Receipt Date: 20201210
  Transmission Date: 20210114
  Serious: Yes (Other)
  Sender: FDA-Public Use
  Company Number: NL-TEVA-2020-NL-1855763

PATIENT
  Sex: Female
  Weight: 64 kg

DRUGS (1)
  1. PAROXETINE TABLET 20MG / BRAND NAME NOT SPECIFIED [Suspect]
     Active Substance: PAROXETINE
     Indication: PANIC DISORDER
     Dosage: 20 MILLIGRAM DAILY;  THERAPY END DATE:ASKU
     Dates: start: 2004

REACTIONS (2)
  - Memory impairment [Not Recovered/Not Resolved]
  - Mental impairment [Not Recovered/Not Resolved]
